FAERS Safety Report 14818836 (Version 1)
Quarter: 2018Q2

REPORT INFORMATION
  Report Type: Spontaneous
  Country: GB (occurrence: GB)
  Receive Date: 20180427
  Receipt Date: 20180427
  Transmission Date: 20180711
  Serious: Yes (Death, Hospitalization, Congenital Anomaly)
  Sender: FDA-Public Use
  Company Number: GB-ABBVIE-18S-167-2335058-00

PATIENT
  Sex: Male

DRUGS (1)
  1. VALPROATE SODIUM. [Suspect]
     Active Substance: VALPROATE SODIUM
     Indication: MATERNAL EXPOSURE TIMING UNSPECIFIED
     Route: 064

REACTIONS (9)
  - Death [Fatal]
  - Cardiac septal defect [Unknown]
  - Congenital anomaly [Unknown]
  - Foetal exposure during pregnancy [Unknown]
  - Crying [Unknown]
  - Foetal anticonvulsant syndrome [Unknown]
  - Feeding disorder [Unknown]
  - Cardiac failure [Unknown]
  - Small for dates baby [Unknown]
